FAERS Safety Report 16786358 (Version 3)
Quarter: 2019Q4

REPORT INFORMATION
  Report Type: Spontaneous
  Country: US (occurrence: US)
  Receive Date: 20190909
  Receipt Date: 20191031
  Transmission Date: 20200122
  Serious: Yes (Hospitalization, Other)
  Sender: FDA-Public Use
  Company Number: US-PFIZER INC-2019384308

PATIENT
  Age: 63 Year
  Sex: Female
  Weight: 81.63 kg

DRUGS (6)
  1. EMBEDA [Suspect]
     Active Substance: MORPHINE SULFATE\NALTREXONE HYDROCHLORIDE
     Indication: PAIN
  2. EMBEDA [Suspect]
     Active Substance: MORPHINE SULFATE\NALTREXONE HYDROCHLORIDE
     Indication: BACK PAIN
     Dosage: 20 MG, 1X/DAY
     Route: 048
  3. EMBEDA [Suspect]
     Active Substance: MORPHINE SULFATE\NALTREXONE HYDROCHLORIDE
     Indication: SCIATICA
     Dosage: 20 MG, UNK
     Route: 048
     Dates: start: 201903
  4. MORPHINE [Concomitant]
     Active Substance: MORPHINE
     Dosage: UNK, 1X/DAY
  5. GABAPENTIN. [Concomitant]
     Active Substance: GABAPENTIN
     Indication: PAIN
     Dosage: 800 MG, 3X/DAY
  6. MORPHINE [Concomitant]
     Active Substance: MORPHINE
     Dosage: 15 MG, 2X/DAY

REACTIONS (5)
  - Drug ineffective [Unknown]
  - Intentional product use issue [Unknown]
  - Rotator cuff syndrome [Recovered/Resolved]
  - Withdrawal syndrome [Not Recovered/Not Resolved]
  - Wrong technique in product usage process [Unknown]
